FAERS Safety Report 14077694 (Version 1)
Quarter: 2017Q4

REPORT INFORMATION
  Report Type: Spontaneous
  Country: SE (occurrence: SE)
  Receive Date: 20171012
  Receipt Date: 20171012
  Transmission Date: 20180321
  Serious: Yes (Hospitalization)
  Sender: FDA-Public Use
  Company Number: SE-AUROBINDO-AUR-APL-2017-41844

PATIENT
  Age: 53 Year
  Sex: Male

DRUGS (1)
  1. METOPROLOL FILM-COATED TABLETS 100MG [Suspect]
     Active Substance: METOPROLOL
     Indication: PRODUCT USED FOR UNKNOWN INDICATION
     Dosage: 100 MG, UNK
     Route: 048

REACTIONS (2)
  - Myalgia [Recovered/Resolved]
  - Dyspnoea [Recovered/Resolved]
